FAERS Safety Report 7668427-2 (Version None)
Quarter: 2011Q3

REPORT INFORMATION
  Report Type: 
  Country: None (occurrence: None)
  Receive Date: 20110803
  Receipt Date: 20110727
  Transmission Date: 20111222
  Serious: No
  Sender: FDA-Public Use
  Company Number: 2011MA010043

PATIENT
  Age: 72 Year
  Sex: Male
  Weight: 108.8633 kg

DRUGS (2)
  1. DIGOXIN [Suspect]
     Dosage: 0.125 MG, QD
     Dates: start: 20060130, end: 20100214
  2. INSULIN [Concomitant]

REACTIONS (5)
  - CARDIAC DISORDER [None]
  - ECONOMIC PROBLEM [None]
  - ANXIETY [None]
  - MULTIPLE INJURIES [None]
  - PAIN [None]
